FAERS Safety Report 6062758-8 (Version None)
Quarter: 2009Q1

REPORT INFORMATION
  Report Type: 
  Country: None (occurrence: None)
  Receive Date: 20090202
  Receipt Date: 20090202
  Transmission Date: 20090719
  Serious: No
  Sender: FDA-Public Use
  Company Number: None

PATIENT
  Age: 54 Year
  Sex: Female
  Weight: 104.3273 kg

DRUGS (2)
  1. BONIVA [Suspect]
     Indication: BONE DENSITY DECREASED
     Dosage: 150MG MONTHLY PO
     Route: 048
     Dates: start: 20090115, end: 20090115
  2. BONIVA [Suspect]
     Indication: OSTEOPOROSIS
     Dosage: 150MG MONTHLY PO
     Route: 048
     Dates: start: 20090115, end: 20090115

REACTIONS (10)
  - ARTHRALGIA [None]
  - DRUG INEFFECTIVE [None]
  - DYSPEPSIA [None]
  - GAIT DISTURBANCE [None]
  - HEADACHE [None]
  - INFLUENZA LIKE ILLNESS [None]
  - MYALGIA [None]
  - NAUSEA [None]
  - PELVIC PAIN [None]
  - PYREXIA [None]
